FAERS Safety Report 7130841-1 (Version None)
Quarter: 2010Q4

REPORT INFORMATION
  Report Type: 
  Country: None (occurrence: None)
  Receive Date: 20101201
  Receipt Date: 20101116
  Transmission Date: 20110411
  Serious: Yes (Other)
  Sender: FDA-Public Use
  Company Number: JP-ROCHE-742809

PATIENT
  Sex: Male
  Weight: 2.8 kg

DRUGS (1)
  1. OSELTAMIVIR [Suspect]
     Dosage: DOSE FORM: ORAL FORMATION(NOT OTHERWISE SPECIFIED)
     Route: 064
     Dates: start: 20091029, end: 20091102

REACTIONS (3)
  - DRUG EXPOSURE DURING PREGNANCY [None]
  - SEPSIS NEONATAL [None]
  - TRANSIENT TACHYPNOEA OF THE NEWBORN [None]
